FAERS Safety Report 10751209 (Version 1)
Quarter: 2015Q1

REPORT INFORMATION
  Report Type: Spontaneous
  Country: US (occurrence: None)
  Receive Date: 20150129
  Receipt Date: 20150129
  Transmission Date: 20150721
  Serious: No
  Sender: FDA-Public Use
  Company Number: None

PATIENT
  Age: 7 Year
  Sex: Male
  Weight: 54 kg

DRUGS (3)
  1. ZYRTEC [Concomitant]
     Active Substance: CETIRIZINE HYDROCHLORIDE
  2. GUANFACINE ER 2MG [Suspect]
     Active Substance: GUANFACINE
     Indication: ATTENTION DEFICIT/HYPERACTIVITY DISORDER
     Route: 048
     Dates: start: 20141215
  3. GUANFACINE ER 2MG [Suspect]
     Active Substance: GUANFACINE
     Indication: OPPOSITIONAL DEFIANT DISORDER
     Route: 048
     Dates: start: 20141215

REACTIONS (5)
  - Decreased activity [None]
  - Gastrointestinal disorder [None]
  - Abdominal discomfort [None]
  - Product substitution issue [None]
  - Somnolence [None]

NARRATIVE: CASE EVENT DATE: 20141215
